FAERS Safety Report 10710686 (Version 1)
Quarter: 2015Q1

REPORT INFORMATION
  Report Type: Spontaneous
  Country: US (occurrence: US)
  Receive Date: 20150114
  Receipt Date: 20150114
  Transmission Date: 20150721
  Serious: No
  Sender: FDA-Public Use
  Company Number: US-EISAI MEDICAL RESEARCH-EC-2015-002907

PATIENT
  Sex: Female

DRUGS (1)
  1. ARICEPT [Suspect]
     Active Substance: DONEPEZIL HYDROCHLORIDE
     Indication: PRODUCT USED FOR UNKNOWN INDICATION
     Dosage: UNKNOWN
     Route: 048

REACTIONS (8)
  - Stress [Unknown]
  - Micturition urgency [Unknown]
  - Nausea [Unknown]
  - Diarrhoea [Unknown]
  - Speech disorder [Unknown]
  - Abdominal pain [Unknown]
  - Confusional state [Unknown]
  - Memory impairment [Unknown]
